FAERS Safety Report 24000400 (Version 1)
Quarter: 2024Q2

REPORT INFORMATION
  Report Type: Spontaneous
  Country: US (occurrence: None)
  Receive Date: 20240621
  Receipt Date: 20240621
  Transmission Date: 20240716
  Serious: No
  Sender: FDA-Public Use
  Company Number: None

PATIENT
  Sex: Male

DRUGS (1)
  1. LUMAKRAS [Suspect]
     Active Substance: SOTORASIB
     Indication: Metastases to lung
     Dosage: FREQUENCY : DAILY;?
     Route: 048
     Dates: start: 202404

REACTIONS (2)
  - Therapy cessation [None]
  - Liver function test increased [None]
